FAERS Safety Report 11204173 (Version 1)
Quarter: 2015Q2

REPORT INFORMATION
  Report Type: Spontaneous
  Country: IT (occurrence: IT)
  Receive Date: 20150620
  Receipt Date: 20150620
  Transmission Date: 20150821
  Serious: Yes (Hospitalization, Other)
  Sender: FDA-Public Use
  Company Number: IT-ROCHE-1544741

PATIENT
  Age: 77 Year
  Sex: Male

DRUGS (8)
  1. OMNIC [Concomitant]
     Active Substance: TAMSULOSIN HYDROCHLORIDE
     Dosage: 20 CAPSULES IN PP/AL BLISTER PACK
     Route: 048
  2. TIKLID [Concomitant]
     Active Substance: TICLOPIDINE HYDROCHLORIDE
     Dosage: 30 TABLETS
     Route: 048
  3. LASIX [Concomitant]
     Active Substance: FUROSEMIDE
     Dosage: 30 TABLETS
     Route: 048
  4. AUGMENTIN [Suspect]
     Active Substance: AMOXICILLIN\CLAVULANATE POTASSIUM
     Indication: SKIN ULCER
     Dosage: 875 MG/125 MG FILM-COATED TABLETS^ 12 TABLETS
     Route: 048
     Dates: start: 20150204, end: 20150213
  5. LYRICA [Concomitant]
     Active Substance: PREGABALIN
     Dosage: 14 CAPSULES IN BLISTER
     Route: 048
  6. OMEPRAZOLE SODIUM [Concomitant]
     Active Substance: OMEPRAZOLE SODIUM
  7. ROCEFIN [Suspect]
     Active Substance: CEFTRIAXONE SODIUM
     Indication: SKIN ULCER
     Dosage: 1G/3.5 ML 1 VIAL POWDER+ 1 VIAL SOLVENT OF 3.5 ML
     Route: 030
     Dates: start: 20150204, end: 20150213
  8. METFORMIN HYDROCHLORIDE. [Concomitant]
     Active Substance: METFORMIN HYDROCHLORIDE

REACTIONS (2)
  - Drug ineffective [Unknown]
  - Lymphangitis [Recovering/Resolving]

NARRATIVE: CASE EVENT DATE: 20150213
